FAERS Safety Report 18345556 (Version 1)
Quarter: 2020Q4

REPORT INFORMATION
  Report Type: Report from Study
  Country: US (occurrence: US)
  Receive Date: 20201005
  Receipt Date: 20201005
  Transmission Date: 20210114
  Serious: Yes (Hospitalization, Other)
  Sender: FDA-Public Use
  Company Number: US-EISAI MEDICAL RESEARCH-EC-2020-078867

PATIENT
  Age: 69 Year
  Sex: Female

DRUGS (1)
  1. LENVIMA [Suspect]
     Active Substance: LENVATINIB
     Indication: ENDOMETRIAL CANCER
     Route: 048
     Dates: start: 20200727, end: 20200830

REACTIONS (12)
  - Asthenia [Unknown]
  - Blood pressure fluctuation [Unknown]
  - Stomatitis [Unknown]
  - Abdominal discomfort [Unknown]
  - Dehydration [Unknown]
  - Pollakiuria [Unknown]
  - Blood glucose increased [Unknown]
  - Blood pressure increased [Unknown]
  - Micturition urgency [Unknown]
  - Food intolerance [Unknown]
  - Sepsis [Unknown]
  - Hypothyroidism [Unknown]

NARRATIVE: CASE EVENT DATE: 2020
